FAERS Safety Report 20129903 (Version 1)
Quarter: 2021Q4

REPORT INFORMATION
  Report Type: Report from Study
  Country: IT (occurrence: IT)
  Receive Date: 20211130
  Receipt Date: 20211130
  Transmission Date: 20220303
  Serious: Yes (Hospitalization)
  Sender: FDA-Public Use
  Company Number: None

PATIENT
  Age: 77 Year
  Sex: Male

DRUGS (2)
  1. MIRTAZAPINE [Suspect]
     Active Substance: MIRTAZAPINE
     Indication: Product used for unknown indication
     Dosage: 7 DOSAGE FORM, TOTAL
     Route: 048
     Dates: start: 20210728, end: 20210728
  2. CITALOPRAM [Concomitant]
     Active Substance: CITALOPRAM HYDROBROMIDE
     Indication: Depression
     Dosage: 20 MILLIGRAM, QD
     Route: 048
     Dates: start: 20210714, end: 20210728

REACTIONS (3)
  - Bradycardia [Unknown]
  - Substance abuse [Unknown]
  - Psychomotor skills impaired [Unknown]

NARRATIVE: CASE EVENT DATE: 20210728
